FAERS Safety Report 18209182 (Version 5)
Quarter: 2021Q2

REPORT INFORMATION
  Report Type: Report from Study
  Country: US (occurrence: US)
  Receive Date: 20200828
  Receipt Date: 20210625
  Transmission Date: 20210717
  Serious: Yes (Hospitalization, Other)
  Sender: FDA-Public Use
  Company Number: US-SHIRE-US202027460

PATIENT
  Sex: Female

DRUGS (1)
  1. HUMAN NORMAL IMMUNOGLOBULIN; LIQUID [Suspect]
     Active Substance: HUMAN IMMUNOGLOBULIN G
     Indication: IMMUNODEFICIENCY COMMON VARIABLE
     Dosage: UNK, UNKNOWN
     Route: 042

REACTIONS (17)
  - Pain [Recovered/Resolved]
  - Femur fracture [Unknown]
  - Meniscus injury [Unknown]
  - Humerus fracture [Unknown]
  - Synovitis [Unknown]
  - Osteoporosis [Unknown]
  - Postoperative wound infection [Not Recovered/Not Resolved]
  - Fall [Unknown]
  - Nausea [Unknown]
  - Osteopenia [Unknown]
  - Infusion related reaction [Unknown]
  - Rheumatoid arthritis [Unknown]
  - Headache [Recovered/Resolved]
  - Staphylococcal infection [Unknown]
  - Impaired healing [Not Recovered/Not Resolved]
  - Inappropriate schedule of product administration [Unknown]
  - Back pain [Unknown]
